FAERS Safety Report 9712072 (Version 2)
Quarter: 2013Q4

REPORT INFORMATION
  Report Type: Spontaneous
  Country: US (occurrence: US)
  Receive Date: 20131126
  Receipt Date: 20131126
  Transmission Date: 20140711
  Serious: No
  Sender: FDA-Public Use
  Company Number: US-BRISTOL-MYERS SQUIBB COMPANY-18838078

PATIENT
  Age: 46 Year
  Sex: Female
  Weight: 100.22 kg

DRUGS (3)
  1. BYDUREON [Suspect]
     Indication: TYPE 2 DIABETES MELLITUS
     Route: 058
     Dates: start: 20130308, end: 20130423
  2. ALLEGRA [Suspect]
     Indication: SEASONAL ALLERGY
  3. DIOVAN HCT [Concomitant]
     Dosage: DIOVAN HCT 160/25 MG
     Route: 048

REACTIONS (1)
  - Back pain [Recovering/Resolving]
